FAERS Safety Report 5426862-7 (Version None)
Quarter: 2007Q3

REPORT INFORMATION
  Report Type: 
  Country: None (occurrence: None)
  Receive Date: 20070827
  Receipt Date: 20070801
  Transmission Date: 20080115
  Serious: No
  Sender: FDA-Public Use
  Company Number: US-BOEHRINGER INGELHEIM PHARMACEUTICALS, INC.-2007-BP-18599BP

PATIENT
  Sex: Female

DRUGS (9)
  1. COMBIVENT [Suspect]
     Indication: CHRONIC OBSTRUCTIVE PULMONARY DISEASE
     Route: 055
     Dates: start: 20000101
  2. COMBIVENT [Suspect]
     Indication: EMPHYSEMA
  3. ADVAIR DISKUS 100/50 [Concomitant]
  4. DUONEB [Concomitant]
  5. OXYGEN [Concomitant]
  6. CARDIZEM [Concomitant]
  7. LANOXIN [Concomitant]
  8. SYNTHROID [Concomitant]
  9. SPIRIVA [Concomitant]

REACTIONS (1)
  - DYSPNOEA [None]
